FAERS Safety Report 23859667 (Version 1)
Quarter: 2024Q2

REPORT INFORMATION
  Report Type: Spontaneous
  Country: CZ (occurrence: CZ)
  Receive Date: 20240515
  Receipt Date: 20240515
  Transmission Date: 20240716
  Serious: Yes (Hospitalization, Other)
  Sender: FDA-Public Use
  Company Number: CZ-BRISTOL-MYERS SQUIBB COMPANY-2024-074610

PATIENT
  Age: 53 Year
  Sex: Male

DRUGS (2)
  1. NIVOLUMAB [Suspect]
     Active Substance: NIVOLUMAB
     Indication: Metastatic malignant melanoma
     Dosage: DOSE : IPI 3/NIVO 1;     FREQ : INTERVAL 3 WEEKS
     Dates: start: 20231213, end: 20240307
  2. IPILIMUMAB [Suspect]
     Active Substance: IPILIMUMAB
     Indication: Metastatic malignant melanoma
     Dosage: DOSE : IPI 3/NIVO 1;     FREQ : INTERVAL 3 WEEKS
     Dates: start: 20231213, end: 20240307

REACTIONS (6)
  - Pleural effusion [Recovering/Resolving]
  - Oedema peripheral [Recovering/Resolving]
  - Ascites [Recovering/Resolving]
  - Autoimmune hypothyroidism [Not Recovered/Not Resolved]
  - Myxoedema [Unknown]
  - Neutropenia [Unknown]

NARRATIVE: CASE EVENT DATE: 20240101
